FAERS Safety Report 15964125 (Version 1)
Quarter: 2019Q1

REPORT INFORMATION
  Report Type: Report from Study
  Country: None (occurrence: NL)
  Receive Date: 20190214
  Receipt Date: 20190214
  Transmission Date: 20190417
  Serious: Yes (Hospitalization)
  Sender: FDA-Public Use
  Company Number: NL-ABBVIE-19S-114-2663808-00

PATIENT
  Sex: Male

DRUGS (1)
  1. DUODOPA [Suspect]
     Active Substance: CARBIDOPA\LEVODOPA
     Indication: PARKINSON^S DISEASE
     Route: 050
     Dates: start: 20150130

REACTIONS (4)
  - Inflammatory marker increased [Recovered/Resolved]
  - Cholelithiasis [Not Recovered/Not Resolved]
  - Parkinson^s disease [Recovered/Resolved]
  - Hepatitis [Not Recovered/Not Resolved]
